FAERS Safety Report 15949537 (Version 1)
Quarter: 2019Q1

REPORT INFORMATION
  Report Type: Spontaneous
  Country: HU (occurrence: HU)
  Receive Date: 20190211
  Receipt Date: 20190211
  Transmission Date: 20190417
  Serious: Yes (Death, Other)
  Sender: FDA-Public Use
  Company Number: HU-ROCHE-2258711

PATIENT
  Age: 72 Year
  Sex: Male

DRUGS (3)
  1. ZELBORAF [Suspect]
     Active Substance: VEMURAFENIB
     Route: 048
     Dates: start: 201811, end: 20181218
  2. ZELBORAF [Suspect]
     Active Substance: VEMURAFENIB
     Indication: METASTATIC MALIGNANT MELANOMA
     Route: 048
     Dates: start: 20181016, end: 201811
  3. COTELLIC [Suspect]
     Active Substance: COBIMETINIB
     Indication: METASTATIC MALIGNANT MELANOMA
     Dosage: 1X1 TABLET DAILY FOR 3 WEEKS AND 1 WEEK QUIT
     Route: 048
     Dates: start: 20181120, end: 20181218

REACTIONS (7)
  - Death [Fatal]
  - Haematuria [Unknown]
  - Renal impairment [Unknown]
  - Anaemia [Unknown]
  - Abdominal pain [Recovered/Resolved]
  - Off label use [Unknown]
  - Intentional product use issue [Unknown]

NARRATIVE: CASE EVENT DATE: 20181120
